FAERS Safety Report 19894273 (Version 2)
Quarter: 2022Q2

REPORT INFORMATION
  Report Type: Spontaneous
  Country: GB (occurrence: GB)
  Receive Date: 20210928
  Receipt Date: 20220525
  Transmission Date: 20220721
  Serious: Yes (Disabling, Other)
  Sender: FDA-Public Use
  Company Number: None

PATIENT
  Age: 29 Year
  Sex: Female
  Weight: 48 kg

DRUGS (3)
  1. HYDROCORTISONE ACETATE [Suspect]
     Active Substance: HYDROCORTISONE ACETATE
     Indication: Eczema
     Dosage: APPLIED TWICE PER DAY TO FACE AND EYELIDS
     Route: 061
     Dates: start: 20210118, end: 20210204
  2. EUMOVATE [Suspect]
     Active Substance: CLOBETASONE BUTYRATE
     Indication: Eczema
     Dosage: APPLIED TWICE PER DAY TO NECK, CHEST AND ARMS
     Route: 061
     Dates: start: 20210118, end: 20210205
  3. MOMETASONE FUROATE [Suspect]
     Active Substance: MOMETASONE FUROATE
     Indication: Eczema
     Dosage: TOOK FOR 5 DAYS INITIALLY AND THEN ATTEMPTED TO WEAN OFF BY REDUCING DOSAGE UNTIL STOP 9TH OF APRIL
     Route: 061
     Dates: start: 20210211, end: 20210409

REACTIONS (11)
  - Oedema [Not Recovered/Not Resolved]
  - Medication error [Unknown]
  - Erythema [Not Recovered/Not Resolved]
  - Skin weeping [Not Recovered/Not Resolved]
  - Insomnia [Not Recovered/Not Resolved]
  - Rash [Not Recovered/Not Resolved]
  - Housebound [Unknown]
  - Skin exfoliation [Unknown]
  - Depression [Unknown]
  - Temperature regulation disorder [Unknown]
  - Topical steroid withdrawal reaction [Not Recovered/Not Resolved]

NARRATIVE: CASE EVENT DATE: 20210409
